FAERS Safety Report 24270633 (Version 2)
Quarter: 2025Q2

REPORT INFORMATION
  Report Type: Spontaneous
  Country: JP (occurrence: JP)
  Receive Date: 20240831
  Receipt Date: 20250628
  Transmission Date: 20250717
  Serious: Yes (Death, Hospitalization, Other)
  Sender: UNITED THERAPEUTICS
  Company Number: JP-UNITED THERAPEUTICS-UNT-2024-015006

PATIENT
  Age: 73 Year
  Sex: Male

DRUGS (2)
  1. TREPROSTINIL [Suspect]
     Active Substance: TREPROSTINIL
     Indication: Pulmonary hypertension
     Dosage: 18 ?G, QID
     Dates: start: 20240510
  2. TREPROSTINIL [Suspect]
     Active Substance: TREPROSTINIL
     Indication: Interstitial lung disease

REACTIONS (4)
  - Death [Fatal]
  - Pulmonary hypertension [Recovering/Resolving]
  - Interstitial lung disease [Unknown]
  - Off label use [Unknown]

NARRATIVE: CASE EVENT DATE: 20240510
